FAERS Safety Report 7418566-6 (Version None)
Quarter: 2011Q2

REPORT INFORMATION
  Report Type: 
  Country: None (occurrence: None)
  Receive Date: 20110415
  Receipt Date: 20110408
  Transmission Date: 20111010
  Serious: Yes (Other)
  Sender: FDA-Public Use
  Company Number: PHHY2011GR29807

PATIENT
  Age: 82 Year
  Sex: Male

DRUGS (2)
  1. RASILEZ [Suspect]
     Indication: HYPERTENSION
     Dates: start: 20110406
  2. EXFORGE HCT [Concomitant]

REACTIONS (3)
  - BLOOD PRESSURE DECREASED [None]
  - OEDEMA [None]
  - BRONCHOSPASM [None]
